FAERS Safety Report 6845097-4 (Version None)
Quarter: 2010Q3

REPORT INFORMATION
  Report Type: 
  Country: None (occurrence: None)
  Receive Date: 20100715
  Receipt Date: 20070813
  Transmission Date: 20110219
  Serious: No
  Sender: FDA-Public Use
  Company Number: US-PFIZER INC-2007068283

PATIENT
  Sex: Female
  Weight: 80.9 kg

DRUGS (5)
  1. CHANTIX [Suspect]
     Indication: SMOKING CESSATION THERAPY
     Route: 048
     Dates: start: 20070811
  2. INTERFERON BETA [Concomitant]
  3. INDERAL [Concomitant]
  4. CLIDINIUM [Concomitant]
  5. ACETYLSALICYLIC ACID [Concomitant]

REACTIONS (3)
  - FEELING ABNORMAL [None]
  - MOOD ALTERED [None]
  - NIGHTMARE [None]
